FAERS Safety Report 5623983-0 (Version None)
Quarter: 2008Q1

REPORT INFORMATION
  Report Type: 
  Country: None (occurrence: None)
  Receive Date: 20080208
  Receipt Date: 20080208
  Transmission Date: 20080703
  Serious: Yes (Death)
  Sender: FDA-Public Use
  Company Number: None

PATIENT
  Age: 28 Year
  Sex: Female
  Weight: 56.246 kg

DRUGS (3)
  1. INOMAX [Suspect]
     Indication: PULMONARY HYPERTENSION
     Dosage: 20 PPM;CONT;INH
     Route: 055
     Dates: start: 20071211, end: 20071231
  2. RENACIDIN [Concomitant]
  3. EPOPROSTENOL SODIUM [Concomitant]

REACTIONS (4)
  - CARDIO-RESPIRATORY ARREST [None]
  - DEVICE FAILURE [None]
  - OXYGEN SATURATION DECREASED [None]
  - PULMONARY ARTERIAL WEDGE PRESSURE DECREASED [None]
